FAERS Safety Report 23496562 (Version 1)
Quarter: 2024Q1

REPORT INFORMATION
  Report Type: Spontaneous
  Country: SE (occurrence: SE)
  Receive Date: 20240208
  Receipt Date: 20240208
  Transmission Date: 20240409
  Serious: Yes (Other)
  Sender: FDA-Public Use
  Company Number: None

PATIENT
  Age: 23 Year
  Sex: Female

DRUGS (1)
  1. CLINDAMYCIN [Suspect]
     Active Substance: CLINDAMYCIN
     Indication: Shoulder operation
     Route: 065
     Dates: start: 20231101

REACTIONS (2)
  - Throat irritation [Unknown]
  - Urticaria [Unknown]

NARRATIVE: CASE EVENT DATE: 20231103
